FAERS Safety Report 9464939 (Version 1)
Quarter: 2013Q3

REPORT INFORMATION
  Report Type: Spontaneous
  Country: MX (occurrence: MX)
  Receive Date: 20130819
  Receipt Date: 20130819
  Transmission Date: 20140515
  Serious: Yes (Other)
  Sender: FDA-Public Use
  Company Number: PHHY2013MX089275

PATIENT
  Age: 50 Year
  Sex: Male

DRUGS (2)
  1. EXFORGE HCT [Suspect]
     Indication: HYPERTENSION
     Dosage: 1 DF (160/12.5 MG), DAILY
     Route: 048
     Dates: start: 201111, end: 201112
  2. EXFORGE HCT [Suspect]
     Dosage: 0.5 DF (160/12.5 MG), DAILY
     Route: 048
     Dates: start: 201112

REACTIONS (3)
  - Angina unstable [Unknown]
  - Hypotension [Not Recovered/Not Resolved]
  - Wrong technique in drug usage process [Unknown]
